FAERS Safety Report 22148710 (Version 1)
Quarter: 2023Q1

REPORT INFORMATION
  Report Type: Spontaneous
  Country: US (occurrence: US)
  Receive Date: 20230328
  Receipt Date: 20230328
  Transmission Date: 20230418
  Serious: No
  Sender: FDA-Public Use
  Company Number: US-PFIZER INC-PV202300054261

PATIENT
  Age: 65 Year
  Sex: Male

DRUGS (1)
  1. EUCRISA [Suspect]
     Active Substance: CRISABOROLE
     Indication: Dermatitis contact
     Dosage: UNK, 1X/DAY (USE TO HANDS ONCE DAILY)

REACTIONS (2)
  - Off label use [Unknown]
  - Skin fissures [Unknown]
